FAERS Safety Report 9364109 (Version 2)
Quarter: 2013Q3

REPORT INFORMATION
  Report Type: Spontaneous
  Country: US (occurrence: US)
  Receive Date: 20130624
  Receipt Date: 20130701
  Transmission Date: 20140515
  Serious: Yes (Other)
  Sender: FDA-Public Use
  Company Number: US-AMGEN-USASP2013043611

PATIENT
  Age: 64 Year
  Sex: Female
  Weight: 74.38 kg

DRUGS (8)
  1. PROLIA [Suspect]
     Indication: OSTEOPOROSIS POSTMENOPAUSAL
     Dosage: UNK
     Dates: start: 2010
  2. TRILEPTAL [Concomitant]
     Dosage: UNK UNK, QD
  3. LISINOPRIL [Concomitant]
     Dosage: 40 MG, QD
  4. ASPIRIN [Concomitant]
     Dosage: 81 MG, QD
  5. CYMBALTA [Concomitant]
     Dosage: 30 MG, QD
  6. SYNTHROID [Concomitant]
     Dosage: 200 MUG, QD
  7. CENTRUM SILVER                     /02363801/ [Concomitant]
  8. CALTRATE WITH VITAMIN D [Concomitant]

REACTIONS (4)
  - Fall [Recovering/Resolving]
  - Lower limb fracture [Recovered/Resolved]
  - Chest injury [Recovering/Resolving]
  - Chest pain [Not Recovered/Not Resolved]
